FAERS Safety Report 8783522 (Version 1)
Quarter: 2012Q4

REPORT INFORMATION
  Report Type: 
  Country: US (occurrence: US)
  Receive Date: 20120914
  Receipt Date: 20120914
  Transmission Date: 20130627
  Serious: Yes (Hospitalization)
  Sender: FDA-Public Use
  Company Number: US-TEVA-358694USA

PATIENT
  Age: 63 Year
  Sex: Male

DRUGS (10)
  1. CARBOPLATIN [Suspect]
     Indication: METASTATIC MALIGNANT MELANOMA
     Dosage: AUC=5 on day 1 of each 21-day cycle
     Dates: start: 201104
  2. CISPLATIN [Suspect]
     Indication: METASTATIC MALIGNANT MELANOMA
     Dosage: 25 mg/m2 on days 1-3 of each 21-day cycle
     Route: 042
  3. VINBLASTINE [Concomitant]
     Indication: METASTATIC MALIGNANT MELANOMA
     Dosage: 1.2 mg/m2 on days 1-3 of each 21-day cycle
     Route: 042
  4. TEMOZOLOMIDE [Concomitant]
     Indication: METASTATIC MALIGNANT MELANOMA
     Dosage: 150 mg/m2 on days 1-5 of each 21-day cycle
     Route: 065
  5. TEMOZOLOMIDE [Concomitant]
     Indication: METASTATIC MALIGNANT MELANOMA
     Route: 065
  6. IPILIMUMAB [Concomitant]
     Indication: METASTATIC MALIGNANT MELANOMA
     Route: 065
  7. FLANVOTUMAB [Concomitant]
     Indication: METASTATIC MALIGNANT MELANOMA
     Route: 065
  8. PACLITAXEL [Concomitant]
     Indication: METASTATIC MALIGNANT MELANOMA
     Dosage: 175 mg/m2 on day 1 of each 21-day cycle
     Route: 065
     Dates: start: 201104
  9. CRESTOR [Concomitant]
     Route: 065
  10. TOPROL-XL [Concomitant]
     Route: 065

REACTIONS (1)
  - Angina unstable [Recovered/Resolved]
